FAERS Safety Report 23055221 (Version 1)
Quarter: 2023Q4

REPORT INFORMATION
  Report Type: Spontaneous
  Country: US (occurrence: None)
  Receive Date: 20231011
  Receipt Date: 20231011
  Transmission Date: 20240109
  Serious: Yes (Disabling, Other)
  Sender: FDA-Public Use
  Company Number: None

PATIENT
  Age: 53 Year
  Sex: Female
  Weight: 52.65 kg

DRUGS (19)
  1. CLONAZEPAM [Suspect]
     Active Substance: CLONAZEPAM
     Indication: Anxiety
     Dates: start: 20060605, end: 20230113
  2. CLONAZEPAM [Suspect]
     Active Substance: CLONAZEPAM
     Indication: Myoclonus
  3. ATORVASTATIN [Concomitant]
     Active Substance: ATORVASTATIN
  4. CLONAZEPAM [Concomitant]
     Active Substance: CLONAZEPAM
  5. LEVOXYL [Concomitant]
     Active Substance: LEVOTHYROXINE SODIUM
  6. TRULANCE [Concomitant]
     Active Substance: PLECANATIDE
  7. Montelkulast [Concomitant]
  8. PYRIDIUM [Concomitant]
     Active Substance: PHENAZOPYRIDINE
  9. TYLENOL [Concomitant]
     Active Substance: ACETAMINOPHEN
  10. PYRIDIUM [Concomitant]
     Active Substance: PHENAZOPYRIDINE
  11. CROMOLYN SODIUM [Concomitant]
     Active Substance: CROMOLYN SODIUM
  12. CETIRIZINE HYDROCHLORIDE [Concomitant]
     Active Substance: CETIRIZINE HYDROCHLORIDE
  13. FAMOTIDINE [Concomitant]
     Active Substance: FAMOTIDINE
  14. GAS-X [Concomitant]
     Active Substance: DIMETHICONE
  15. COLACE [Concomitant]
     Active Substance: DOCUSATE SODIUM
  16. ENEMA (SODIUM PHOSPHATE, DIBASIC\SODIUM PHOSPHATE, MONOBASIC) [Concomitant]
     Active Substance: SODIUM PHOSPHATE, DIBASIC\SODIUM PHOSPHATE, MONOBASIC
  17. MAGNESIUM OXIDE [Concomitant]
     Active Substance: MAGNESIUM OXIDE
  18. Mag Citrate [Concomitant]
  19. TYLENOL [Concomitant]
     Active Substance: ACETAMINOPHEN

REACTIONS (30)
  - Therapy cessation [None]
  - Drug dependence [None]
  - Tinnitus [None]
  - Hyperacusis [None]
  - Sensory disturbance [None]
  - Suicidal ideation [None]
  - Tremor [None]
  - Electric shock [None]
  - Akathisia [None]
  - Photophobia [None]
  - Nervous system disorder [None]
  - Paraesthesia [None]
  - Insomnia [None]
  - Vision blurred [None]
  - Autophobia [None]
  - Exploding head syndrome [None]
  - Tardive dyskinesia [None]
  - Agitation [None]
  - Feeling abnormal [None]
  - Irritability [None]
  - Reading disorder [None]
  - Loss of personal independence in daily activities [None]
  - Abulia [None]
  - Toothache [None]
  - Neuralgia [None]
  - Hot flush [None]
  - Abdominal discomfort [None]
  - Head discomfort [None]
  - Fear [None]
  - Withdrawal syndrome [None]

NARRATIVE: CASE EVENT DATE: 20230113
